FAERS Safety Report 7867489-7 (Version None)
Quarter: 2011Q4

REPORT INFORMATION
  Report Type: 
  Country: None (occurrence: None)
  Receive Date: 20111028
  Receipt Date: 20111019
  Transmission Date: 20120403
  Serious: Yes (Other)
  Sender: FDA-Public Use
  Company Number: PHHY2011BE94106

PATIENT
  Sex: Female

DRUGS (2)
  1. EXTAVIA [Suspect]
     Indication: MULTIPLE SCLEROSIS
     Dosage: 250 UG, QOD
     Route: 058
     Dates: start: 20110523
  2. LORAZEPAM [Suspect]
     Dosage: SEVERAL TABLETS

REACTIONS (3)
  - TOXICITY TO VARIOUS AGENTS [None]
  - DEPRESSED MOOD [None]
  - HYPERSOMNIA [None]
